FAERS Safety Report 7549843-6 (Version None)
Quarter: 2011Q2

REPORT INFORMATION
  Report Type: 
  Country: None (occurrence: None)
  Receive Date: 20110615
  Receipt Date: 20110421
  Transmission Date: 20111010
  Serious: Yes (Other)
  Sender: FDA-Public Use
  Company Number: PHHY2011CA34279

PATIENT
  Sex: Female

DRUGS (4)
  1. CALCIUM CARBONATE [Concomitant]
     Dosage: UNK
  2. SYNTHROID [Concomitant]
     Dosage: UNK
  3. ZOLEDRONIC ACID [Suspect]
     Indication: OSTEOPOROSIS
     Dosage: 5 MG,
     Route: 042
     Dates: start: 20100706
  4. VITAMIN D [Concomitant]
     Dosage: UNK

REACTIONS (5)
  - BLINDNESS [None]
  - VEIN DISORDER [None]
  - VISUAL ACUITY REDUCED [None]
  - EYE PAIN [None]
  - MACULAR DEGENERATION [None]
